FAERS Safety Report 12758268 (Version 1)
Quarter: 2016Q3

REPORT INFORMATION
  Report Type: Spontaneous
  Country: RU (occurrence: RU)
  Receive Date: 20160919
  Receipt Date: 20160919
  Transmission Date: 20161109
  Serious: Yes (Hospitalization)
  Sender: FDA-Public Use
  Company Number: RU-GLAXOSMITHKLINE-RU2016GSK132814

PATIENT
  Age: 19 Month

DRUGS (3)
  1. TAVEGIL [Suspect]
     Active Substance: CLEMASTINE FUMARATE
     Dosage: UNK
     Dates: start: 201609
  2. POLIORIX [Suspect]
     Active Substance: POLIOMYELITIS VACCINE
     Indication: PROPHYLAXIS
     Dates: start: 20160905, end: 20160905
  3. PREVENAR [Suspect]
     Active Substance: PNEUMOCOCCAL 7-VALENT CONJUGATE VACCINE (DIPHTHERIA CRM197 PROTEIN)
     Indication: PROPHYLAXIS
     Dosage: UNK
     Dates: start: 20160905

REACTIONS (6)
  - Tonsillar disorder [Unknown]
  - Dermatitis allergic [Unknown]
  - Hypersensitivity [Unknown]
  - Erythema [Unknown]
  - Intentional product misuse [Unknown]
  - Face oedema [Not Recovered/Not Resolved]

NARRATIVE: CASE EVENT DATE: 201609
